FAERS Safety Report 4299074-0 (Version None)
Quarter: 2004Q1

REPORT INFORMATION
  Report Type: 
  Country: None (occurrence: None)
  Receive Date: 20040217
  Receipt Date: 20040203
  Transmission Date: 20041129
  Serious: Yes (Hospitalization)
  Sender: FDA-Public Use
  Company Number: 228349

PATIENT
  Age: 65 Year
  Sex: Male
  Weight: 78 kg

DRUGS (8)
  1. NOVONORM (REPAGLINIDE) TABLET, 2.0MG [Suspect]
     Indication: DIABETES MELLITUS NON-INSULIN-DEPENDENT
     Dosage: 2 MG, TID; 1 MG, QD
     Dates: end: 20030402
  2. ALLOPURINOL [Concomitant]
  3. GEMFIBROZIL [Concomitant]
  4. KARDEGIC (ACETYLSALICYLATE LYSINE) [Concomitant]
  5. HYPERIUM (RILMENIDINE) [Concomitant]
  6. UN-ALFA [Concomitant]
  7. DYSALFA (TEROZOSIN) [Concomitant]
  8. CHRONADALAT (NIFEDIPINE) [Concomitant]

REACTIONS (7)
  - APHASIA [None]
  - BLOOD PRESSURE INCREASED [None]
  - FACIAL PALSY [None]
  - HEART RATE INCREASED [None]
  - HYPERHIDROSIS [None]
  - HYPOGLYCAEMIC COMA [None]
  - RESTLESSNESS [None]
